FAERS Safety Report 21420606 (Version 1)
Quarter: 2022Q4

REPORT INFORMATION
  Report Type: Report from Study
  Country: US (occurrence: US)
  Receive Date: 20221007
  Receipt Date: 20221007
  Transmission Date: 20230113
  Serious: Yes (Disabling)
  Sender: FDA-Public Use
  Company Number: US-VERICEL-US-VCEL-22-000662

PATIENT
  Age: 31 Year
  Sex: Female

DRUGS (1)
  1. MACI [Suspect]
     Active Substance: AUTOLOGOUS CULTURED CHONDROCYTES\SUS SCROFA COLLAGEN
     Indication: Product used for unknown indication
     Dosage: UNK, SINGLE
     Route: 050
     Dates: start: 20210921, end: 20210921

REACTIONS (2)
  - Muscle atrophy [Not Recovered/Not Resolved]
  - Graft overgrowth [Not Recovered/Not Resolved]
